FAERS Safety Report 5906466-X (Version None)
Quarter: 2008Q4

REPORT INFORMATION
  Report Type: 
  Country: None (occurrence: None)
  Receive Date: 20081002
  Receipt Date: 20080923
  Transmission Date: 20090506
  Serious: Yes (Hospitalization, Other)
  Sender: FDA-Public Use
  Company Number: US-AMGEN-QUU307480

PATIENT
  Sex: Female
  Weight: 58.6 kg

DRUGS (7)
  1. ENBREL [Suspect]
     Indication: RHEUMATOID ARTHRITIS
     Route: 058
     Dates: start: 20050901, end: 20080708
  2. METHOTREXATE [Concomitant]
     Route: 048
     Dates: start: 20070529, end: 20080601
  3. FOLIC ACID [Concomitant]
     Dates: start: 20070529, end: 20080708
  4. NAPRELAN [Concomitant]
  5. PYRIDOXINE HYDROCHLORIDE [Concomitant]
  6. OS-CAL + D [Concomitant]
  7. INDERAL [Concomitant]

REACTIONS (8)
  - ANAEMIA [None]
  - ARTHRALGIA [None]
  - ASCITES [None]
  - DEHYDRATION [None]
  - HYPONATRAEMIA [None]
  - MALNUTRITION [None]
  - PERITONEAL TUBERCULOSIS [None]
  - PLEURAL EFFUSION [None]
